FAERS Safety Report 21036097 (Version 1)
Quarter: 2022Q3

REPORT INFORMATION
  Report Type: Spontaneous
  Country: US (occurrence: US)
  Receive Date: 20220701
  Receipt Date: 20220701
  Transmission Date: 20221026
  Serious: No
  Sender: FDA-Public Use
  Company Number: US-THERAPEUTICSMD-2022TMD00144

PATIENT
  Sex: Female
  Weight: 68.492 kg

DRUGS (3)
  1. IMVEXXY [Suspect]
     Active Substance: ESTRADIOL
     Indication: Dyspareunia
     Dosage: 10 ?G, 2X/WEEK
     Route: 067
     Dates: start: 202103, end: 2021
  2. IMVEXXY [Suspect]
     Active Substance: ESTRADIOL
     Indication: Vulvovaginal dryness
     Dosage: 10 ?G, 2X/WEEK
     Route: 067
     Dates: start: 2021
  3. UNSPECIFIED INGREDIENT [Concomitant]
     Active Substance: UNSPECIFIED INGREDIENT

REACTIONS (2)
  - Vulvovaginal mycotic infection [Not Recovered/Not Resolved]
  - Vulvovaginal pruritus [Not Recovered/Not Resolved]

NARRATIVE: CASE EVENT DATE: 20210101
